FAERS Safety Report 7571930-7 (Version None)
Quarter: 2011Q2

REPORT INFORMATION
  Report Type: 
  Country: None (occurrence: None)
  Receive Date: 20110624
  Receipt Date: 20110201
  Transmission Date: 20111010
  Serious: No
  Sender: FDA-Public Use
  Company Number: A0911180A

PATIENT
  Age: 74 Year
  Sex: Female

DRUGS (4)
  1. VERAMYST [Suspect]
     Dosage: 2PUFF PER DAY
     Route: 045
     Dates: start: 20110125, end: 20110131
  2. LEVOCETIRIZINE DIHYDROCHLORIDE [Suspect]
     Dosage: 5MG PER DAY
     Dates: start: 20110125, end: 20110131
  3. AMBIEN [Concomitant]
  4. ZOCOR [Concomitant]

REACTIONS (7)
  - NASAL ULCER [None]
  - DYSPHONIA [None]
  - OROPHARYNGEAL PAIN [None]
  - MALAISE [None]
  - PRODUCT QUALITY ISSUE [None]
  - RHINALGIA [None]
  - FUNGAL INFECTION [None]
